FAERS Safety Report 5311471-0 (Version None)
Quarter: 2007Q2

REPORT INFORMATION
  Report Type: 
  Country: None (occurrence: None)
  Receive Date: 20070426
  Receipt Date: 20070426
  Transmission Date: 20071010
  Serious: Yes (Other)
  Sender: FDA-Public Use
  Company Number: None

PATIENT
  Age: 47 Year
  Sex: Female
  Weight: 61.9 kg

DRUGS (1)
  1. OMEPRAZOLE [Suspect]

REACTIONS (3)
  - MUSCLE SPASMS [None]
  - NAUSEA [None]
  - VOMITING [None]
